FAERS Safety Report 13973516 (Version 1)
Quarter: 2017Q3

REPORT INFORMATION
  Report Type: Other
  Country: IT (occurrence: IT)
  Receive Date: 20170915
  Receipt Date: 20170915
  Transmission Date: 20171128
  Serious: Yes (Hospitalization)
  Sender: FDA-Public Use
  Company Number: IT-AUROBINDO-AUR-APL-2013-01023

PATIENT

DRUGS (3)
  1. DICLOFENAC [Suspect]
     Active Substance: DICLOFENAC
     Indication: PRODUCT USED FOR UNKNOWN INDICATION
     Dosage: UNK UNK,UNK,,15 DOSE UNITS/TOTAL
     Route: 048
     Dates: start: 20120924, end: 20120924
  2. LORAZEPAM. [Suspect]
     Active Substance: LORAZEPAM
     Indication: PRODUCT USED FOR UNKNOWN INDICATION
     Dosage: 15 MG,DAILY,
     Route: 048
     Dates: start: 20120924, end: 20120924
  3. OLANZAPINE. [Suspect]
     Active Substance: OLANZAPINE
     Indication: PRODUCT USED FOR UNKNOWN INDICATION
     Dosage: UNK UNK,UNK,,10 DOSE UNITS/TOTAL
     Route: 048
     Dates: start: 20120924, end: 20120924

REACTIONS (6)
  - Loss of consciousness [Recovering/Resolving]
  - Slow response to stimuli [Recovering/Resolving]
  - Overdose [Recovering/Resolving]
  - Coma [Recovering/Resolving]
  - Toxicity to various agents [Recovering/Resolving]
  - Drug abuse [Recovering/Resolving]

NARRATIVE: CASE EVENT DATE: 20120924
